FAERS Safety Report 15679258 (Version 2)
Quarter: 2018Q4

REPORT INFORMATION
  Report Type: Spontaneous
  Country: AU (occurrence: AU)
  Receive Date: 20181203
  Receipt Date: 20181217
  Transmission Date: 20190205
  Serious: Yes (Hospitalization, Other)
  Sender: FDA-Public Use
  Company Number: AU-AMGEN-AUSSP2018169401

PATIENT
  Age: 85 Year
  Sex: Male

DRUGS (4)
  1. NEBILET [Concomitant]
     Active Substance: NEBIVOLOL
     Indication: CARDIAC FAILURE CONGESTIVE
     Dosage: 1.25 MG, QD
     Dates: start: 20181114
  2. REPATHA [Suspect]
     Active Substance: EVOLOCUMAB
     Indication: MYOCARDIAL ISCHAEMIA
     Dosage: 140 MG, UNK
     Route: 058
     Dates: start: 201712
  3. ENTRESTO [Concomitant]
     Active Substance: SACUBITRIL\VALSARTAN
     Indication: CARDIAC FAILURE CONGESTIVE
     Dosage: 24/26 MG, QD
     Dates: start: 20181114
  4. CARDIPRIN [Concomitant]
     Indication: MYOCARDIAL ISCHAEMIA
     Dosage: 100 MG, QD
     Dates: start: 1988

REACTIONS (3)
  - Acute myocardial infarction [Recovered/Resolved]
  - Coronary artery occlusion [Unknown]
  - Coronary vascular graft occlusion [Unknown]

NARRATIVE: CASE EVENT DATE: 20181114
